FAERS Safety Report 8762810 (Version 1)
Quarter: 2012Q4

REPORT INFORMATION
  Report Type: Report from Study
  Country: DE (occurrence: DE)
  Receive Date: 20120830
  Receipt Date: 20120830
  Transmission Date: 20130627
  Serious: Yes (Hospitalization)
  Sender: FDA-Public Use
  Company Number: DE-PFIZER INC-2012211182

PATIENT
  Age: 11 Year
  Sex: Male
  Weight: 48 kg

DRUGS (10)
  1. PANTOPRAZOLE [Suspect]
     Dosage: 40 mg daily
     Route: 048
     Dates: start: 20120624, end: 20120815
  2. IMATINIB [Suspect]
     Indication: ACUTE LYMPHOCYTIC LEUKAEMIA
     Dosage: 450 mg daily
     Route: 048
     Dates: start: 20120713
  3. CYTARABINE [Suspect]
     Dosage: 110 mg daily
     Route: 042
     Dates: start: 20120808, end: 20120811
  4. CYTARABINE [Suspect]
     Dosage: 110 mg daily
     Route: 042
     Dates: start: 20120816
  5. GRANISETRON [Suspect]
     Dosage: 3 mg daily
     Route: 042
     Dates: start: 20120808, end: 20120811
  6. GRANISETRON [Suspect]
     Dosage: 3 mg daily
     Route: 042
     Dates: start: 20120816
  7. TRIMETHOPRIM [Suspect]
     Dosage: 120 mg twice, every Sat, Sun, Mon
     Route: 048
  8. FUROSEMIDE [Suspect]
     Dosage: 10 mg, 2x/day
     Dates: start: 20120809, end: 20120811
  9. AMPHOTERICIN B [Suspect]
     Dosage: 60 mg, every 4 hrs
     Route: 048
     Dates: start: 20120624
  10. MERCAPTOPURINE [Suspect]
     Dosage: 87.5 mg, 1x/day
     Route: 048
     Dates: start: 20120806

REACTIONS (1)
  - Amnesia [Not Recovered/Not Resolved]
